FAERS Safety Report 6521513-2 (Version None)
Quarter: 2009Q4

REPORT INFORMATION
  Report Type: 
  Country: None (occurrence: None)
  Receive Date: 20091230
  Receipt Date: 20091218
  Transmission Date: 20100525
  Serious: Yes (Other)
  Sender: FDA-Public Use
  Company Number: US-PFIZER INC-2009313179

PATIENT
  Sex: Female
  Weight: 64.399 kg

DRUGS (10)
  1. TOVIAZ [Suspect]
     Indication: CYSTITIS INTERSTITIAL
     Dosage: 4 MG, 1X/DAY
     Route: 048
     Dates: start: 20091204
  2. TOVIAZ [Suspect]
     Dosage: 8 MG, 1X/DAY
     Route: 048
  3. DETROL LA [Suspect]
     Indication: CYSTITIS INTERSTITIAL
     Dosage: 4 MG, 1X/DAY
     Route: 048
     Dates: start: 20090701, end: 20091217
  4. ELMIRON [Suspect]
     Indication: CYSTITIS INTERSTITIAL
     Dosage: FREQUENCY: 2X/DAY,
     Route: 048
     Dates: start: 20091101, end: 20091203
  5. METFORMIN [Concomitant]
     Indication: DIABETES MELLITUS
     Dosage: FREQUENCY: 2X/DAY,
     Route: 048
  6. METOPROLOL TARTRATE [Concomitant]
     Indication: HEART RATE IRREGULAR
     Dosage: 25 MG, 1X/DAY
     Route: 048
  7. LISINOPRIL [Concomitant]
     Indication: DIABETES MELLITUS
     Dosage: 20 MG, 1X/DAY
  8. TRIAMTERENE [Concomitant]
     Dosage: 37.5 MG/25, 1X/DAY
     Route: 048
  9. SIMVASTATIN [Concomitant]
     Indication: BLOOD CHOLESTEROL INCREASED
     Dosage: 5 MG, 1X/DAY
  10. PLAVIX [Concomitant]
     Dosage: 75 MG, 1X/DAY
     Route: 048

REACTIONS (1)
  - LOSS OF CONSCIOUSNESS [None]
